FAERS Safety Report 5916618-0 (Version None)
Quarter: 2008Q4

REPORT INFORMATION
  Report Type: 
  Country: None (occurrence: None)
  Receive Date: 20081013
  Receipt Date: 20081006
  Transmission Date: 20090506
  Serious: Yes (Hospitalization, Other)
  Sender: FDA-Public Use
  Company Number: US-WYE-H04825708

PATIENT
  Sex: Female

DRUGS (3)
  1. PREMPRO [Suspect]
     Indication: HORMONE REPLACEMENT THERAPY
     Dosage: UNKNOWN
     Route: 048
     Dates: start: 19980312, end: 20020701
  2. PROVERA [Suspect]
     Dosage: UNKNOWN
     Route: 048
  3. PREMARIN [Suspect]
     Dosage: UNKNOWN
     Route: 048

REACTIONS (4)
  - BREAST CANCER METASTATIC [None]
  - BREAST CANCER STAGE III [None]
  - OESTROGEN RECEPTOR ASSAY POSITIVE [None]
  - PROGESTERONE RECEPTOR ASSAY NEGATIVE [None]
